FAERS Safety Report 6973221-1 (Version None)
Quarter: 2010Q3

REPORT INFORMATION
  Report Type: 
  Country: None (occurrence: None)
  Receive Date: 20100909
  Receipt Date: 20100902
  Transmission Date: 20110219
  Serious: Yes (Hospitalization)
  Sender: FDA-Public Use
  Company Number: KR-ELI_LILLY_AND_COMPANY-KR201009000880

PATIENT
  Age: 50 Year
  Sex: Female

DRUGS (1)
  1. HUMALOG MIX 75/25 [Suspect]
     Indication: DIABETES MELLITUS
     Dosage: 22 U, DAILY (1/D)
     Route: 058
     Dates: start: 20090701

REACTIONS (4)
  - COLD SWEAT [None]
  - DIZZINESS [None]
  - HYPERGLYCAEMIA [None]
  - HYPOGLYCAEMIA [None]
